FAERS Safety Report 24836072 (Version 1)
Quarter: 2025Q1

REPORT INFORMATION
  Report Type: Report from Study
  Country: TW (occurrence: TW)
  Receive Date: 20250113
  Receipt Date: 20250113
  Transmission Date: 20250409
  Serious: Yes (Other)
  Sender: ROCHE
  Company Number: TW-ROCHE-10000167053

PATIENT
  Age: 55 Year
  Sex: Female

DRUGS (1)
  1. PERJETA [Suspect]
     Active Substance: PERTUZUMAB
     Indication: Breast cancer
     Route: 050
     Dates: start: 20231208, end: 20241216

REACTIONS (3)
  - Skin cancer [Unknown]
  - Skin injury [Unknown]
  - Anal pruritus [Unknown]

NARRATIVE: CASE EVENT DATE: 20241223
